FAERS Safety Report 7304456-6 (Version None)
Quarter: 2011Q1

REPORT INFORMATION
  Report Type: 
  Country: None (occurrence: None)
  Receive Date: 20110221
  Receipt Date: 20110216
  Transmission Date: 20110831
  Serious: Yes (Life-Threatening, Hospitalization, Other)
  Sender: FDA-Public Use
  Company Number: US-ASTRAZENECA-2010SE42341

PATIENT
  Age: 65 Year
  Sex: Female
  Weight: 90.3 kg

DRUGS (12)
  1. SEROQUEL [Suspect]
     Route: 048
     Dates: start: 20080101, end: 20101201
  2. SOMA [Concomitant]
  3. SEROQUEL [Suspect]
     Indication: INSOMNIA
     Route: 048
  4. SEROQUEL [Suspect]
     Route: 048
  5. SEROQUEL [Suspect]
     Indication: DEPRESSION
     Route: 048
  6. SEROQUEL [Suspect]
     Route: 048
     Dates: start: 20080101, end: 20101201
  7. PAXIL [Concomitant]
  8. ATIVAN [Concomitant]
  9. SEROQUEL [Suspect]
     Route: 048
  10. SEROQUEL [Suspect]
     Route: 048
  11. SEROQUEL [Suspect]
     Route: 048
     Dates: start: 20080101, end: 20101201
  12. SEROQUEL [Suspect]
     Indication: SLEEP DISORDER
     Route: 048

REACTIONS (16)
  - FALL [None]
  - HOSPITALISATION [None]
  - SPLENIC INJURY [None]
  - HAEMORRHAGE [None]
  - DRUG DOSE OMISSION [None]
  - POST PROCEDURAL COMPLICATION [None]
  - INSOMNIA [None]
  - WEIGHT INCREASED [None]
  - LIMB CRUSHING INJURY [None]
  - MEMORY IMPAIRMENT [None]
  - THINKING ABNORMAL [None]
  - FEELING ABNORMAL [None]
  - CARDIAC ARREST [None]
  - COMA [None]
  - LOWER LIMB FRACTURE [None]
  - PSYCHIATRIC SYMPTOM [None]
